FAERS Safety Report 23513614 (Version 1)
Quarter: 2024Q1

REPORT INFORMATION
  Report Type: Spontaneous
  Country: US (occurrence: US)
  Receive Date: 20240212
  Receipt Date: 20240212
  Transmission Date: 20240409
  Serious: Yes (Other)
  Sender: FDA-Public Use
  Company Number: US-PFIZER INC-202400035951

PATIENT
  Age: 56 Year
  Sex: Female
  Weight: 66.68 kg

DRUGS (1)
  1. PAXLOVID [Suspect]
     Active Substance: NIRMATRELVIR\RITONAVIR
     Indication: COVID-19 treatment
     Dosage: [NIRMATRELVIR 300 MG]/[RITONAVIR 100 MG]; 2X/DAY;
     Route: 048
     Dates: start: 20240118, end: 20240122

REACTIONS (6)
  - Hallucination [Recovered/Resolved]
  - Nightmare [Not Recovered/Not Resolved]
  - Screaming [Unknown]
  - Conversion disorder [Unknown]
  - Body temperature fluctuation [Unknown]
  - Hypersomnia [Unknown]

NARRATIVE: CASE EVENT DATE: 20240121
